FAERS Safety Report 9773844 (Version 1)
Quarter: 2013Q4

REPORT INFORMATION
  Report Type: Spontaneous
  Country: US (occurrence: US)
  Receive Date: 20131220
  Receipt Date: 20131220
  Transmission Date: 20140711
  Serious: Yes (Hospitalization, Other)
  Sender: FDA-Public Use
  Company Number: US-AMGEN-USASP2013088952

PATIENT
  Age: 62 Year
  Sex: Female
  Weight: 88.44 kg

DRUGS (3)
  1. ENBREL [Suspect]
     Indication: RHEUMATOID ARTHRITIS
     Dosage: 50 MG, QWK
     Route: 058
     Dates: start: 2003
  2. METHOTREXATE [Concomitant]
     Dosage: UNK
  3. IBUPROFEN [Concomitant]
     Dosage: UNK

REACTIONS (5)
  - Pancreatitis acute [Unknown]
  - Hepatic cirrhosis [Unknown]
  - Renal disorder [Unknown]
  - Vomiting [Unknown]
  - Swelling [Unknown]
